FAERS Safety Report 9664157 (Version 1)
Quarter: 2013Q4

REPORT INFORMATION
  Report Type: Spontaneous
  Country: GB (occurrence: GB)
  Receive Date: 20131101
  Receipt Date: 20131101
  Transmission Date: 20140711
  Serious: Yes (Death)
  Sender: FDA-Public Use
  Company Number: PHFR2013GB006000

PATIENT
  Sex: Female

DRUGS (3)
  1. DAPTOMYCIN [Suspect]
     Indication: STAPHYLOCOCCAL SEPSIS
     Dosage: UNK
     Dates: end: 201303
  2. DAPTOMYCIN [Suspect]
     Indication: OFF LABEL USE
  3. VANCOMYCIN [Suspect]
     Indication: STAPHYLOCOCCAL SEPSIS

REACTIONS (2)
  - Staphylococcal sepsis [Fatal]
  - Skin mass [Recovering/Resolving]
